FAERS Safety Report 4353652-9 (Version None)
Quarter: 2004Q2

REPORT INFORMATION
  Report Type: 
  Country: None (occurrence: None)
  Receive Date: 20040430
  Receipt Date: 20040421
  Transmission Date: 20050107
  Serious: Yes (Hospitalization)
  Sender: FDA-Public Use
  Company Number: 2004210030DE

PATIENT
  Age: 49 Year
  Sex: Female

DRUGS (2)
  1. EPIRUBICIN [Suspect]
     Indication: BREAST CANCER
     Dosage: 258 NG, CYCLIC , IV
     Route: 042
     Dates: start: 20020618, end: 20020618
  2. NEUPOGEN [Suspect]
     Dosage: 300 UG, QD, SUBCUTANEOUS
     Route: 058
     Dates: start: 20020620, end: 20020627

REACTIONS (3)
  - BACK PAIN [None]
  - BONE MARROW DISORDER [None]
  - NEUTROPENIA [None]
